FAERS Safety Report 8896275 (Version 3)
Quarter: 2012Q4

REPORT INFORMATION
  Report Type: Spontaneous
  Country: IN (occurrence: None)
  Receive Date: 20121031
  Receipt Date: 20121115
  Transmission Date: 20130627
  Serious: Yes (Death)
  Sender: FDA-Public Use
  Company Number: DSA_60412_2012

PATIENT
  Sex: Male

DRUGS (3)
  1. WELLBUTRIN [Suspect]
     Indication: STRESS
     Route: 048
     Dates: start: 20090519, end: 20090528
  2. WELLBUTRIN [Suspect]
     Indication: DEPRESSION
     Route: 048
     Dates: start: 20090519, end: 20090528
  3. AMBIEN CR [Concomitant]

REACTIONS (9)
  - Completed suicide [None]
  - Depression [None]
  - Abnormal behaviour [None]
  - Fall [None]
  - Social avoidant behaviour [None]
  - Confusional state [None]
  - Multiple injuries [None]
  - Cardio-respiratory arrest [None]
  - Head injury [None]
